FAERS Safety Report 9640412 (Version 2)
Quarter: 2013Q4

REPORT INFORMATION
  Report Type: Spontaneous
  Country: IT (occurrence: IT)
  Receive Date: 20131023
  Receipt Date: 20131028
  Transmission Date: 20140711
  Serious: Yes (Other)
  Sender: FDA-Public Use
  Company Number: PHHY2013IT118738

PATIENT
  Age: 75 Year
  Sex: Male

DRUGS (1)
  1. TASIGNA [Suspect]
     Route: 048

REACTIONS (4)
  - Intermittent claudication [Unknown]
  - Peripheral arterial occlusive disease [Unknown]
  - Myocardial infarction [Unknown]
  - Hyperglycaemia [Recovered/Resolved]
